FAERS Safety Report 19348669 (Version 1)
Quarter: 2021Q2

REPORT INFORMATION
  Report Type: Spontaneous
  Country: US (occurrence: US)
  Receive Date: 20210528
  Receipt Date: 20210528
  Transmission Date: 20210717
  Serious: No
  Sender: FDA-Public Use
  Company Number: None

PATIENT
  Sex: Female

DRUGS (1)
  1. DRYSOL [Suspect]
     Active Substance: ALUMINUM CHLORIDE
     Indication: HYPERHIDROSIS
     Dates: start: 20210326

REACTIONS (1)
  - Application site odour [None]
